FAERS Safety Report 10421304 (Version 3)
Quarter: 2014Q4

REPORT INFORMATION
  Report Type: Spontaneous
  Country: US (occurrence: US)
  Receive Date: 20140831
  Receipt Date: 20141001
  Transmission Date: 20150528
  Serious: Yes (Hospitalization, Other)
  Sender: FDA-Public Use
  Company Number: US-JNJFOC-20140820645

PATIENT
  Age: 4 Month
  Sex: Male
  Weight: 8.16 kg

DRUGS (3)
  1. UNKNOWN MEDICATION [Concomitant]
     Active Substance: UNSPECIFIED INGREDIENT
     Indication: ABDOMINAL PAIN
     Dosage: 4 MONTHS
     Route: 065
  2. INFANTS TYLENOL [Suspect]
     Active Substance: ACETAMINOPHEN
     Indication: TEETHING
     Dosage: 1.75 -3.75;
     Route: 048
  3. INFANTS TYLENOL [Suspect]
     Active Substance: ACETAMINOPHEN
     Route: 048

REACTIONS (4)
  - Seizure [Unknown]
  - Product contamination [Unknown]
  - Cough [Unknown]
  - Choking [Recovered/Resolved]

NARRATIVE: CASE EVENT DATE: 201408
